FAERS Safety Report 9386675 (Version 2)
Quarter: 2013Q3

REPORT INFORMATION
  Report Type: Spontaneous
  Country: US (occurrence: US)
  Receive Date: 20130708
  Receipt Date: 20130801
  Transmission Date: 20140515
  Serious: No
  Sender: FDA-Public Use
  Company Number: US-PFIZER INC-2013199621

PATIENT
  Age: 51 Year
  Sex: Male
  Weight: 75.74 kg

DRUGS (8)
  1. LYRICA [Suspect]
     Indication: PAIN
     Dosage: 150 MG, 4X/DAY
     Dates: start: 201103, end: 2013
  2. LYRICA [Suspect]
     Indication: DEPRESSION
  3. ACETAMINOPHEN W/HYDROCODONE BITARTRATE [Suspect]
     Indication: ARTHRITIS
     Dosage: HYDROCODONE BITARTRATE (7.5MG)/ACETAMINOPHEN (500 MG), 4X/DAY
  4. PAXIL [Suspect]
     Indication: DEPRESSION
     Dosage: UNK, AS NEEDED
  5. FLEXERIL [Concomitant]
     Indication: MUSCLE SPASMS
     Dosage: 10 MG, 3X/DAY
  6. EPITOL [Concomitant]
     Indication: CONVULSION
     Dosage: UNK, 1X/DAY
  7. MOBIC [Concomitant]
     Indication: ARTHRITIS
     Dosage: UNK
  8. TRAZODONE [Concomitant]
     Indication: DEPRESSION
     Dosage: UNK, AS NEEDED

REACTIONS (4)
  - Off label use [Unknown]
  - Vision blurred [Unknown]
  - Pruritus [Unknown]
  - Poor quality sleep [Unknown]
